FAERS Safety Report 13654893 (Version 1)
Quarter: 2017Q2

REPORT INFORMATION
  Report Type: Spontaneous
  Country: CA (occurrence: CA)
  Receive Date: 20170615
  Receipt Date: 20170615
  Transmission Date: 20170830
  Serious: Yes (Death)
  Sender: FDA-Public Use
  Company Number: CA-TEVA-777853ACC

PATIENT
  Age: 48 Year
  Sex: Female
  Weight: 99 kg

DRUGS (6)
  1. VENLAFAXINE XR [Suspect]
     Active Substance: VENLAFAXINE HYDROCHLORIDE
  2. ZOPICLONE [Suspect]
     Active Substance: ZOPICLONE
  3. NABILONE [Concomitant]
     Active Substance: NABILONE
  4. RABEPRAZOLE [Concomitant]
     Active Substance: RABEPRAZOLE
  5. AMITRIPTYLINE [Suspect]
     Active Substance: AMITRIPTYLINE
  6. LYRICA [Concomitant]
     Active Substance: PREGABALIN

REACTIONS (2)
  - Toxicologic test abnormal [Fatal]
  - Completed suicide [Fatal]
